FAERS Safety Report 8494615-1 (Version None)
Quarter: 2012Q2

REPORT INFORMATION
  Report Type: 
  Country: None (occurrence: None)
  Receive Date: 20120405
  Receipt Date: 20110425
  Transmission Date: 20120825
  Serious: Yes (Hospitalization)
  Sender: FDA-Public Use
  Company Number: PHHY2011US33864

PATIENT
  Age: 65 Year
  Sex: Female
  Weight: 51.7 kg

DRUGS (21)
  1. FENTANYL [Concomitant]
  2. PREMARIN [Concomitant]
  3. ZYRTEC [Concomitant]
  4. BONIVA [Concomitant]
  5. TEGRETOL [Concomitant]
  6. COQ10 (UBIDECARENONE) [Concomitant]
  7. CALCIUM CARBONATE [Concomitant]
  8. VITAMIN B2 (RIBOFLAVIN) [Concomitant]
  9. MULTIVITAMINS (ASCORBIC ACID, ERGOCALCIFEROL, FOLIC ACID, NICOTINAMIDE [Concomitant]
  10. CELEBREX [Concomitant]
  11. PAREGORIC (ANISE OIL, BENZOIC ACID, CAMPHOR, ETHANOL, GLYCEROL, ILLICI [Concomitant]
  12. PHAZYME (DIASTASE, PANCREATIN, PEPSIN, SIMETICONE) [Concomitant]
  13. PATADAY [Concomitant]
  14. ASCORBIC ACID [Concomitant]
  15. ULTRAM [Concomitant]
  16. ACETAMINOPHEN [Concomitant]
  17. LUNESTA [Concomitant]
  18. RECLAST [Suspect]
     Indication: OSTEOPOROSIS
     Dosage: 5 MG, ONCE, INTRAVENOUS
     Route: 042
     Dates: start: 20110418
  19. LACHYDRIN (LACTIC ACID) [Concomitant]
  20. VITAMIN D [Concomitant]
  21. TPN [Concomitant]

REACTIONS (4)
  - MUSCLE SPASMS [None]
  - CHILLS [None]
  - PYREXIA [None]
  - NAUSEA [None]
